FAERS Safety Report 9350558 (Version 1)
Quarter: 2013Q2

REPORT INFORMATION
  Report Type: Spontaneous
  Country: US (occurrence: US)
  Receive Date: 20130617
  Receipt Date: 20130617
  Transmission Date: 20140414
  Serious: No
  Sender: FDA-Public Use
  Company Number: US-PFIZER INC-2013181146

PATIENT
  Age: 42 Year
  Sex: Female
  Weight: 83.9 kg

DRUGS (6)
  1. CHANTIX [Suspect]
     Indication: SMOKING CESSATION THERAPY
     Dosage: 0.5 MG, 1X/DAY
     Route: 048
     Dates: start: 201304
  2. NORCO [Concomitant]
     Dosage: [HYDROCODONE 10 MG]/[PARACETAMOL 325MG], UNK
  3. TRAMADOL [Concomitant]
     Dosage: 50 MG, UNK
  4. OXYCODONE [Concomitant]
     Dosage: UNK
  5. REGIMEX [Concomitant]
     Dosage: UNK
  6. GABAPENTIN [Concomitant]
     Dosage: UNK

REACTIONS (3)
  - Inappropriate schedule of drug administration [Unknown]
  - Drug dispensing error [Unknown]
  - Tobacco user [Unknown]
